FAERS Safety Report 8446952-4 (Version None)
Quarter: 2012Q2

REPORT INFORMATION
  Report Type: 
  Country: None (occurrence: None)
  Receive Date: 20120613
  Receipt Date: 20120613
  Transmission Date: 20120825
  Serious: Yes (Life-Threatening)
  Sender: FDA-Public Use
  Company Number: None

PATIENT
  Sex: Female
  Weight: 87.4 kg

DRUGS (1)
  1. LISINOPRIL [Suspect]
     Indication: HYPERTENSION
     Dosage: 40MG, DAILY, PO
     Route: 048

REACTIONS (6)
  - TONSILLAR DISORDER [None]
  - HYPERSENSITIVITY [None]
  - ILL-DEFINED DISORDER [None]
  - SWOLLEN TONGUE [None]
  - SPEECH DISORDER [None]
  - PHARYNGEAL OEDEMA [None]
